FAERS Safety Report 5797058-4 (Version None)
Quarter: 2008Q2

REPORT INFORMATION
  Report Type: 
  Country: None (occurrence: None)
  Receive Date: 20080618
  Receipt Date: 20070824
  Transmission Date: 20081010
  Serious: Yes (Other)
  Sender: FDA-Public Use
  Company Number: 200716089US

PATIENT
  Age: 81 Year
  Sex: Female
  Weight: 68.18 kg

DRUGS (7)
  1. LANTUS [Suspect]
     Indication: TYPE 2 DIABETES MELLITUS
     Dosage: 65 U QAM INJ
     Route: 042
     Dates: start: 20070724
  2. LANTUS [Suspect]
     Indication: TYPE 2 DIABETES MELLITUS
     Dosage: 5 U HS INJ
     Route: 042
     Dates: start: 20070701
  3. OPTICLIK GREY [Suspect]
     Indication: TYPE 2 DIABETES MELLITUS
     Dates: start: 20070701
  4. SYNTHROID [Concomitant]
  5. PRAVASTATIN SODIUM (PRAVACHOL) [Concomitant]
  6. CITALOPRAM HYDROBROMIDE (CELEXA /00582502/) [Concomitant]
  7. HUMALOG [Concomitant]

REACTIONS (1)
  - HYPOGLYCAEMIA [None]
